FAERS Safety Report 9218106 (Version 1)
Quarter: 2013Q2

REPORT INFORMATION
  Report Type: Spontaneous
  Country: IN (occurrence: IN)
  Receive Date: 20130408
  Receipt Date: 20130408
  Transmission Date: 20140414
  Serious: Yes (Other)
  Sender: FDA-Public Use
  Company Number: IN-GLAXOSMITHKLINE-B0881282A

PATIENT
  Age: 52 Year
  Sex: Male

DRUGS (3)
  1. VENLAFAXINE [Suspect]
     Indication: MAJOR DEPRESSION
     Route: 065
  2. BUPROPION [Suspect]
     Indication: MAJOR DEPRESSION
     Route: 065
  3. CITALOPRAM [Concomitant]
     Indication: MAJOR DEPRESSION
     Dosage: 20MG PER DAY

REACTIONS (6)
  - Suicidal ideation [Unknown]
  - Anxiety [Unknown]
  - Agitation [Unknown]
  - Restlessness [Unknown]
  - Blood pressure increased [Unknown]
  - Drug interaction [Unknown]
